FAERS Safety Report 13942254 (Version 1)
Quarter: 2017Q3

REPORT INFORMATION
  Report Type: Spontaneous
  Country: US (occurrence: None)
  Receive Date: 20170907
  Receipt Date: 20170907
  Transmission Date: 20171127
  Serious: Yes (Hospitalization)
  Sender: FDA-Public Use
  Company Number: None

PATIENT
  Age: 59 Year
  Weight: 43.5 kg

DRUGS (29)
  1. FLUDROCORTISONE [Concomitant]
     Active Substance: FLUDROCORTISONE
  2. LURASIDONE [Concomitant]
     Active Substance: LURASIDONE
  3. PANCRELIPASE. [Concomitant]
     Active Substance: PANCRELIPASE
  4. LIP-PROT-AMY [Concomitant]
  5. FOLIC ACID. [Concomitant]
     Active Substance: FOLIC ACID
  6. NEXAVAR [Concomitant]
     Active Substance: SORAFENIB
  7. HYDROMORPHONE [Suspect]
     Active Substance: HYDROMORPHONE
  8. DRONABINOL. [Concomitant]
     Active Substance: DRONABINOL
  9. ONDANSETRON [Concomitant]
     Active Substance: ONDANSETRON
  10. BUSPIRONE [Concomitant]
     Active Substance: BUSPIRONE HYDROCHLORIDE
  11. PANTOPRAZOLE [Concomitant]
     Active Substance: PANTOPRAZOLE
  12. AUGMENTIN [Concomitant]
     Active Substance: AMOXICILLIN\CLAVULANATE POTASSIUM
  13. TACROLIMUS. [Concomitant]
     Active Substance: TACROLIMUS
  14. CYCLOBENZAPRINE. [Concomitant]
     Active Substance: CYCLOBENZAPRINE
  15. MULTIPLE VITAMIN [Concomitant]
     Active Substance: VITAMINS
  16. NS [Concomitant]
     Active Substance: SODIUM CHLORIDE
  17. ALBUTEROL. [Concomitant]
     Active Substance: ALBUTEROL
  18. VANC/AZTREOMAN [Concomitant]
  19. LISINOPRIL. [Concomitant]
     Active Substance: LISINOPRIL
  20. NEUPOGEN [Concomitant]
     Active Substance: FILGRASTIM
  21. DACLATASVIR 60 MG BRISTOL MYERS SQUIBB [Suspect]
     Active Substance: DACLATASVIR
     Indication: HEPATITIS C
     Route: 048
     Dates: start: 20161221, end: 20170315
  22. SOFOSBUVIR 400 MG GILEAD [Suspect]
     Active Substance: SOFOSBUVIR
     Indication: HEPATITIS C
     Route: 048
  23. ASCORBIC ACID. [Concomitant]
     Active Substance: ASCORBIC ACID
  24. BACLOFEN. [Concomitant]
     Active Substance: BACLOFEN
  25. FERROUS SULFATE. [Concomitant]
     Active Substance: FERROUS SULFATE
  26. METHADONE [Concomitant]
     Active Substance: METHADONE HYDROCHLORIDE
  27. KCL [Concomitant]
     Active Substance: POTASSIUM CHLORIDE
  28. VANC/ZOSYN [Concomitant]
  29. SIROLIMUS. [Concomitant]
     Active Substance: SIROLIMUS

REACTIONS (1)
  - Hepatic encephalopathy [None]

NARRATIVE: CASE EVENT DATE: 20170313
